FAERS Safety Report 6369895-9 (Version None)
Quarter: 2009Q3

REPORT INFORMATION
  Report Type: 
  Country: None (occurrence: None)
  Receive Date: 20090923
  Receipt Date: 20070612
  Transmission Date: 20100115
  Serious: Yes (Other)
  Sender: FDA-Public Use
  Company Number: US-ASTRAZENECA-2006UW12017

PATIENT
  Age: 10648 Day
  Sex: Male
  Weight: 90.7 kg

DRUGS (12)
  1. SEROQUEL [Suspect]
     Indication: SCHIZOPHRENIA
     Route: 048
     Dates: start: 20000101, end: 20030101
  2. SEROQUEL [Suspect]
     Indication: DEPRESSION
     Route: 048
     Dates: start: 20000101, end: 20030101
  3. ZYPREXA [Suspect]
     Dates: start: 20000101
  4. ZYPREXA [Suspect]
     Dosage: 5 - 20 MG AT NIGHT
     Dates: start: 20011024
  5. PREVACID [Concomitant]
     Indication: GASTRITIS
     Dates: start: 20001204
  6. TRAZODONE [Concomitant]
     Dates: start: 20011024
  7. NEURONTIN [Concomitant]
     Dosage: 300 - 900 MG DAILY
     Dates: start: 20011024
  8. CELEXA [Concomitant]
     Dosage: 20 - 40 MG EVERY MORNING
     Dates: start: 20011024
  9. DEPAKOTE [Concomitant]
     Dates: start: 20011024
  10. XANAX [Concomitant]
     Dates: start: 20021202
  11. NEXIUM [Concomitant]
     Dates: start: 20040202
  12. BENTYL [Concomitant]
     Dates: start: 20040202

REACTIONS (4)
  - DIABETES MELLITUS [None]
  - PANCREATITIS [None]
  - TARDIVE DYSKINESIA [None]
  - WEIGHT INCREASED [None]
